FAERS Safety Report 17347333 (Version 1)
Quarter: 2020Q1

REPORT INFORMATION
  Report Type: Report from Study
  Country: US (occurrence: US)
  Receive Date: 20200129
  Receipt Date: 20200129
  Transmission Date: 20200409
  Serious: No
  Sender: FDA-Public Use
  Company Number: US-EXELIXIS-CABO-19022290

PATIENT
  Sex: Female

DRUGS (3)
  1. CABOMETYX [Suspect]
     Active Substance: CABOZANTINIB S-MALATE
     Indication: VAGINAL CANCER
     Dosage: 60 MG, QD
     Dates: start: 20190612, end: 20190705
  2. CABOMETYX [Suspect]
     Active Substance: CABOZANTINIB S-MALATE
     Dosage: 60 MG
  3. CABOMETYX [Suspect]
     Active Substance: CABOZANTINIB S-MALATE
     Dosage: 60 MG, QD QAM
     Dates: start: 20190709, end: 20190724

REACTIONS (9)
  - Off label use [Unknown]
  - White blood cell count decreased [Unknown]
  - Hair colour changes [Recovering/Resolving]
  - Genital blister [Recovering/Resolving]
  - Stomatitis [Recovering/Resolving]
  - Nausea [Unknown]
  - Blood pressure increased [Recovering/Resolving]
  - Fatigue [Unknown]
  - Palmar-plantar erythrodysaesthesia syndrome [Not Recovered/Not Resolved]

NARRATIVE: CASE EVENT DATE: 2019
